FAERS Safety Report 4638698-5 (Version None)
Quarter: 2005Q2

REPORT INFORMATION
  Report Type: 
  Country: None (occurrence: None)
  Receive Date: 20050419
  Receipt Date: 20050401
  Transmission Date: 20051028
  Serious: Yes (Hospitalization)
  Sender: FDA-Public Use
  Company Number: FR-BOEHRINGER INGELHEIM PHARMACEUTICALS, INC.-2005-FF-00232FF

PATIENT
  Age: 76 Year
  Sex: Female

DRUGS (3)
  1. CATAPRES [Suspect]
     Route: 048
     Dates: end: 20041023
  2. CELEBREX [Concomitant]
     Route: 048
     Dates: end: 20041023
  3. DI-ANTALVIC [Concomitant]
     Route: 048
     Dates: end: 20041023

REACTIONS (2)
  - MYOCARDIAL INFARCTION [None]
  - MYOCARDIAL ISCHAEMIA [None]
